FAERS Safety Report 24691519 (Version 1)
Quarter: 2024Q4

REPORT INFORMATION
  Report Type: Spontaneous
  Country: CN (occurrence: CN)
  Receive Date: 20241203
  Receipt Date: 20241203
  Transmission Date: 20250115
  Serious: Yes (Hospitalization)
  Sender: PFIZER
  Company Number: CN-PFIZER INC-PV202400155148

PATIENT
  Age: 42 Year
  Sex: Female
  Weight: 53.2 kg

DRUGS (13)
  1. CYTARABINE [Suspect]
     Active Substance: CYTARABINE
     Indication: Chemotherapy
     Dosage: 30 MG, 1X/DAY
     Route: 041
     Dates: start: 20241017, end: 20241025
  2. CYTARABINE [Suspect]
     Active Substance: CYTARABINE
     Indication: Myelodysplastic syndrome
  3. DECITABINE [Suspect]
     Active Substance: DECITABINE
     Indication: Chemotherapy
     Dosage: 30 MG, 1X/DAY
     Route: 041
     Dates: start: 20241017, end: 20241021
  4. DECITABINE [Suspect]
     Active Substance: DECITABINE
     Indication: Myelodysplastic syndrome
  5. ACLARUBICIN HYDROCHLORIDE [Suspect]
     Active Substance: ACLARUBICIN HYDROCHLORIDE
     Indication: Neoplasm
     Dosage: 10 MG, 1X/DAY
     Route: 041
     Dates: start: 20241017, end: 20241022
  6. ACLARUBICIN HYDROCHLORIDE [Suspect]
     Active Substance: ACLARUBICIN HYDROCHLORIDE
     Indication: Myelodysplastic syndrome
  7. GEMCITABINE [Suspect]
     Active Substance: GEMCITABINE
     Indication: Myelodysplastic syndrome
     Dosage: UNK
     Dates: start: 20241017
  8. Li Sheng Su [Concomitant]
     Indication: White blood cell count decreased
     Dosage: 300 UG, 1X/DAY
     Route: 058
     Dates: start: 20241017, end: 20241017
  9. GAN SHU LIN R [Concomitant]
     Indication: Blood glucose increased
     Dosage: 5 IU, 1X/DAY
     Route: 041
     Dates: start: 20241017, end: 20241025
  10. Su Niao [Concomitant]
     Indication: Diuretic therapy
     Dosage: 20 MG, 1X/DAY
     Route: 048
     Dates: start: 20241017, end: 20241025
  11. AKYNZEO (NETUPITANT\PALONOSETRON HYDROCHLORIDE) [Concomitant]
     Active Substance: NETUPITANT\PALONOSETRON HYDROCHLORIDE
     Indication: Antiemetic supportive care
     Dosage: 1 DF, 1X/DAY
     Route: 048
     Dates: start: 20241017, end: 20241023
  12. NORETHINDRONE [Concomitant]
     Active Substance: NORETHINDRONE
     Indication: Menstruation irregular
     Dosage: 4 DF, 3X/DAY
     Route: 048
     Dates: start: 20241015, end: 20241017
  13. ER TONG SHU [Concomitant]
     Indication: Blood uric acid increased
     Dosage: 50 MG, 1X/DAY
     Route: 048
     Dates: start: 20241017, end: 20241025

REACTIONS (1)
  - Constipation [Recovered/Resolved]

NARRATIVE: CASE EVENT DATE: 20241023
